FAERS Safety Report 22157126 (Version 18)
Quarter: 2025Q4

REPORT INFORMATION
  Report Type: Report from Study
  Country: CO (occurrence: CO)
  Receive Date: 20230330
  Receipt Date: 20251003
  Transmission Date: 20260117
  Serious: Yes (Other)
  Sender: TAKEDA
  Company Number: CO-TAKEDA-2021TUS053676

PATIENT
  Age: 33 Year
  Sex: Female
  Weight: 43 kg

DRUGS (5)
  1. ICATIBANT [Suspect]
     Active Substance: ICATIBANT ACETATE
     Indication: Hereditary angioedema
     Dosage: UNK
  2. ICATIBANT [Suspect]
     Active Substance: ICATIBANT ACETATE
     Dosage: UNK UNK, Q6HR
  3. ICATIBANT [Suspect]
     Active Substance: ICATIBANT ACETATE
     Dosage: 1 DOSAGE FORM
  4. ICATIBANT [Suspect]
     Active Substance: ICATIBANT ACETATE
     Dosage: UNK
  5. ICATIBANT [Suspect]
     Active Substance: ICATIBANT ACETATE
     Dosage: UNK

REACTIONS (6)
  - Tachycardia [Recovering/Resolving]
  - Amnesia [Unknown]
  - Influenza [Recovered/Resolved]
  - Hypersensitivity [Unknown]
  - Urticaria [Unknown]
  - Pterygium [Unknown]

NARRATIVE: CASE EVENT DATE: 20230324
